FAERS Safety Report 5630502-1 (Version None)
Quarter: 2008Q1

REPORT INFORMATION
  Report Type: 
  Country: None (occurrence: None)
  Receive Date: 20080219
  Receipt Date: 20080207
  Transmission Date: 20080703
  Serious: Yes (Hospitalization)
  Sender: FDA-Public Use
  Company Number: GB-AMGEN-US257925

PATIENT
  Sex: Male
  Weight: 111 kg

DRUGS (2)
  1. ENBREL [Suspect]
     Indication: PSORIASIS
     Route: 058
     Dates: start: 20071009, end: 20071113
  2. ENBREL [Suspect]
     Route: 058
     Dates: start: 20080206

REACTIONS (3)
  - APPENDICEAL ABSCESS [None]
  - APPENDICITIS [None]
  - WOUND INFECTION [None]
